FAERS Safety Report 17116347 (Version 2)
Quarter: 2019Q4

REPORT INFORMATION
  Report Type: Spontaneous
  Country: NL (occurrence: NL)
  Receive Date: 20191205
  Receipt Date: 20191213
  Transmission Date: 20200122
  Serious: Yes (Hospitalization)
  Sender: FDA-Public Use
  Company Number: NL-TEVA-2019-NL-1146950

PATIENT
  Age: 43 Year
  Sex: Female
  Weight: 75 kg

DRUGS (11)
  1. PARACETAMOL [Concomitant]
     Active Substance: ACETAMINOPHEN
     Dosage: 4X DAILY 1000 MG
  2. ZOLPIDEM [Concomitant]
     Active Substance: ZOLPIDEM TARTRATE
     Dosage: 1 DD 10 MG AN
  3. OMEPRAZOL 40MG [Concomitant]
     Dosage: 1DD. 1DOSAGE FORMS
  4. METOCLOPRAMIDE HCL 10MG [Concomitant]
     Dosage: IF NECESSARY, 1 DOSAGE FORM
  5. OXALIPLATIN. [Concomitant]
     Active Substance: OXALIPLATIN
  6. OXYNORM 5MG [Concomitant]
     Dosage: IF NECESSARY, MAX 1 PER DAY
  7. DICLOFENAC NA 50MG TABL MSR [Concomitant]
     Dosage: 3X DAILY EVERY 8:50 MG
  8. DIAZEPAM 5MG [Concomitant]
     Active Substance: DIAZEPAM
     Dosage: TABL IF NECESSARY
  9. BEVACIZUMAB. [Concomitant]
     Active Substance: BEVACIZUMAB
  10. ANTICONCEPTIE PIL [Concomitant]
     Dosage: ACCORDING TO APPOINTMENT 1 ST. 1 DOSAGE FORMS
  11. CAPECITABINE. [Suspect]
     Active Substance: CAPECITABINE
     Indication: COLON CANCER
     Dosage: 2DD 1000MG
     Dates: start: 201907, end: 20191105

REACTIONS (1)
  - Arteriospasm coronary [Recovered/Resolved]

NARRATIVE: CASE EVENT DATE: 20191104
